FAERS Safety Report 25046165 (Version 1)
Quarter: 2025Q1

REPORT INFORMATION
  Report Type: Spontaneous
  Country: US (occurrence: None)
  Receive Date: 20250306
  Receipt Date: 20250306
  Transmission Date: 20250409
  Serious: Yes (Hospitalization)
  Sender: FDA-CTU
  Company Number: None

PATIENT
  Sex: Female

DRUGS (9)
  1. TEZSPIRE [Suspect]
     Active Substance: TEZEPELUMAB-EKKO
     Indication: Asthma
     Route: 058
     Dates: start: 20240625
  2. ARAVA [Concomitant]
     Active Substance: LEFLUNOMIDE
  3. CREON [Concomitant]
     Active Substance: PANCRELIPASE AMYLASE\PANCRELIPASE LIPASE\PANCRELIPASE PROTEASE
  4. HUMIRA [Concomitant]
     Active Substance: ADALIMUMAB
  5. HYDROCHLOROTHIAZIDE [Concomitant]
     Active Substance: HYDROCHLOROTHIAZIDE
  6. IRON [Concomitant]
     Active Substance: IRON
  7. MAGNESIUM [Concomitant]
     Active Substance: MAGNESIUM
  8. MOUNJARO [Concomitant]
     Active Substance: TIRZEPATIDE
  9. ROPINIROLE [Concomitant]
     Active Substance: ROPINIROLE

REACTIONS (2)
  - Asthma [None]
  - Myocardial infarction [None]
